FAERS Safety Report 11853037 (Version 2)
Quarter: 2016Q1

REPORT INFORMATION
  Report Type: Spontaneous
  Country: None (occurrence: US)
  Receive Date: 20151218
  Receipt Date: 20160129
  Transmission Date: 20160526
  Serious: No
  Sender: FDA-Public Use
  Company Number: US-MEDAC PHARMA, INC.-1045675

PATIENT
  Age: 52 Year
  Sex: Female
  Weight: 53.18 kg

DRUGS (8)
  1. RASUVO [Suspect]
     Active Substance: METHOTREXATE SODIUM
     Indication: RHEUMATOID ARTHRITIS
     Route: 058
     Dates: start: 201507
  2. PROZAC [Concomitant]
     Active Substance: FLUOXETINE HYDROCHLORIDE
  3. MULTIVITAMIN [Concomitant]
     Active Substance: VITAMINS
  4. PREDNISONE. [Concomitant]
     Active Substance: PREDNISONE
     Dates: start: 20151101
  5. FOLIC ACID. [Concomitant]
     Active Substance: FOLIC ACID
  6. PEPCID AC ORIGINAL STRENGTH [Concomitant]
     Active Substance: FAMOTIDINE
  7. BLACK COHOSH [Concomitant]
     Active Substance: BLACK COHOSH
  8. LORTAB [Concomitant]
     Active Substance: ACETAMINOPHEN\HYDROCODONE BITARTRATE

REACTIONS (5)
  - Pyrexia [Unknown]
  - Feeling hot [Unknown]
  - Pharyngeal paraesthesia [Recovering/Resolving]
  - Paraesthesia [Recovered/Resolved]
  - Dyspepsia [Unknown]
